FAERS Safety Report 7774258-5 (Version None)
Quarter: 2011Q3

REPORT INFORMATION
  Report Type: 
  Country: None (occurrence: None)
  Receive Date: 20110923
  Receipt Date: 20110916
  Transmission Date: 20111222
  Serious: Yes (Other)
  Sender: FDA-Public Use
  Company Number: US-AMGEN-USASP2011047934

PATIENT
  Sex: Male

DRUGS (1)
  1. ENBREL [Suspect]
     Dosage: 50 MG, QWK
     Dates: end: 20110101

REACTIONS (3)
  - ANTINEUTROPHIL CYTOPLASMIC ANTIBODY POSITIVE [None]
  - GLOMERULONEPHRITIS [None]
  - RENAL VASCULITIS [None]
